FAERS Safety Report 18155305 (Version 1)
Quarter: 2020Q3

REPORT INFORMATION
  Report Type: Spontaneous
  Country: US (occurrence: US)
  Receive Date: 20200814
  Receipt Date: 20200814
  Transmission Date: 20201103
  Serious: No
  Sender: FDA-Public Use
  Company Number: None

PATIENT
  Age: 35 Year
  Sex: Female
  Weight: 109 kg

DRUGS (12)
  1. ASCORBIC ACID. [Concomitant]
     Active Substance: ASCORBIC ACID
     Dates: start: 20200806, end: 20200812
  2. CHLORPHENIRAMINE. [Concomitant]
     Active Substance: CHLORPHENIRAMINE
     Dates: start: 20200806, end: 20200807
  3. DOXYCYCLINE. [Concomitant]
     Active Substance: DOXYCYCLINE
     Dates: start: 20200807, end: 20200810
  4. PREDNISONE. [Concomitant]
     Active Substance: PREDNISONE
     Dates: start: 20200807, end: 20200812
  5. ZINC SULFATE. [Concomitant]
     Active Substance: ZINC SULFATE
     Dates: start: 20200806, end: 20200812
  6. REMDESIVIR. [Suspect]
     Active Substance: REMDESIVIR
     Indication: COVID-19 PNEUMONIA
     Route: 042
     Dates: start: 20200806, end: 20200810
  7. CHOLECALCIFEROL [Concomitant]
     Active Substance: CHOLECALCIFEROL
     Dates: start: 20200806, end: 20200812
  8. DEXAMETHASONE IV [Concomitant]
     Active Substance: DEXAMETHASONE
     Dates: start: 20200806, end: 20200806
  9. CEFTRIAXONE. [Concomitant]
     Active Substance: CEFTRIAXONE
     Dates: start: 20200805, end: 20200811
  10. ENOXAPARIN [Concomitant]
     Active Substance: ENOXAPARIN
     Dates: start: 20200806, end: 20200808
  11. ONDANSETRON IV PRN [Concomitant]
     Dates: start: 20200807, end: 20200809
  12. AZITHROMYCIN IV [Concomitant]
     Dates: start: 20200805, end: 20200807

REACTIONS (4)
  - Transaminases increased [None]
  - Therapy cessation [None]
  - Alanine aminotransferase increased [None]
  - Drug interaction [None]

NARRATIVE: CASE EVENT DATE: 20200810
